FAERS Safety Report 15884728 (Version 2)
Quarter: 2019Q3

REPORT INFORMATION
  Report Type: Spontaneous
  Country: MX (occurrence: MX)
  Receive Date: 20190129
  Receipt Date: 20190823
  Transmission Date: 20191004
  Serious: Yes (Other)
  Sender: FDA-Public Use
  Company Number: MX-B.I. PHARMACEUTICALS,INC./RIDGEFIELD-2019-BI-003931

PATIENT
  Age: 50 Year
  Sex: Female

DRUGS (1)
  1. PRADAXAR [Suspect]
     Active Substance: DABIGATRAN ETEXILATE MESYLATE
     Indication: ARTERIAL THROMBOSIS
     Route: 065

REACTIONS (2)
  - Drug ineffective [Unknown]
  - Off label use [Unknown]
